FAERS Safety Report 5916482-X (Version None)
Quarter: 2008Q4

REPORT INFORMATION
  Report Type: 
  Country: None (occurrence: None)
  Receive Date: 20081013
  Receipt Date: 20081003
  Transmission Date: 20090506
  Serious: Yes (Hospitalization)
  Sender: FDA-Public Use
  Company Number: A0724398A

PATIENT
  Age: 52 Year
  Sex: Male
  Weight: 136.4 kg

DRUGS (17)
  1. AVANDIA [Suspect]
     Dosage: 8MG PER DAY
     Route: 048
     Dates: start: 20000322, end: 20070901
  2. METFORMIN HCL [Concomitant]
  3. LANTUS [Concomitant]
  4. AMARYL [Concomitant]
  5. TOPROL-XL [Concomitant]
  6. LOPRESSOR HCT [Concomitant]
  7. LIPITOR [Concomitant]
  8. VIAGRA [Concomitant]
  9. SYNTHROID [Concomitant]
  10. LEVOTHYROXINE SODIUM [Concomitant]
  11. LISINOPRIL [Concomitant]
  12. ASPIRIN [Concomitant]
  13. VITAMIN [Concomitant]
  14. NUTRITIONAL SUPPLEMENT [Concomitant]
  15. PLAVIX [Concomitant]
  16. MAXZIDE [Concomitant]
  17. NORVASC [Concomitant]

REACTIONS (4)
  - ARTERIOSCLEROSIS [None]
  - CORONARY ARTERY DISEASE [None]
  - MYOCARDIAL INFARCTION [None]
  - MYOCARDIAL ISCHAEMIA [None]
